FAERS Safety Report 10975327 (Version 4)
Quarter: 2017Q1

REPORT INFORMATION
  Report Type: Spontaneous
  Country: US (occurrence: US)
  Receive Date: 20150401
  Receipt Date: 20170214
  Transmission Date: 20170428
  Serious: Yes (Other)
  Sender: FDA-Public Use
  Company Number: US-PFIZER INC-2015107691

PATIENT
  Age: 48 Year
  Sex: Male
  Weight: 97.7 kg

DRUGS (2)
  1. BENEFIX [Suspect]
     Active Substance: COAGULATION FACTOR IX RECOMBINANT HUMAN\ISOPROPYL ALCOHOL
     Indication: HAEMOPHILIA
     Dosage: 12000 IU, WEEKLY (PROPHYLACTIC DOSE)
  2. BENEFIX [Suspect]
     Active Substance: COAGULATION FACTOR IX RECOMBINANT HUMAN\ISOPROPYL ALCOHOL
     Dosage: 6600 IU, DAILY (REGULAR DOSES)

REACTIONS (5)
  - Drug dose omission [Unknown]
  - Head injury [Unknown]
  - Joint injury [Unknown]
  - Haemorrhage [Not Recovered/Not Resolved]
  - Abasia [Unknown]

NARRATIVE: CASE EVENT DATE: 20170210
